FAERS Safety Report 14584316 (Version 7)
Quarter: 2018Q2

REPORT INFORMATION
  Report Type: Report from Study
  Country: IE (occurrence: IE)
  Receive Date: 20180228
  Receipt Date: 20180510
  Transmission Date: 20180711
  Serious: Yes (Hospitalization, Other)
  Sender: FDA-Public Use
  Company Number: IE-AMGEN-IRLSL2017182673

PATIENT
  Age: 79 Year
  Sex: Male

DRUGS (13)
  1. MELPHALAN. [Concomitant]
     Active Substance: MELPHALAN
     Dosage: UNK
     Route: 050
  2. PREDNISOLONE. [Concomitant]
     Active Substance: PREDNISOLONE
     Dosage: UNK
     Route: 050
  3. VIMOVO [Concomitant]
     Active Substance: ESOMEPRAZOLE MAGNESIUM\NAPROXEN
     Indication: ARTHRALGIA
     Dosage: 520 MG, BID (500MG/20MG)
     Route: 050
  4. PREGABALIN. [Concomitant]
     Active Substance: PREGABALIN
     Dosage: 75 MG, T.D.S.
     Route: 050
  5. EXPUTEX [Concomitant]
     Dosage: 1500 MG, UNK
     Route: 050
  6. CLARITHROMYCIN. [Concomitant]
     Active Substance: CLARITHROMYCIN
     Dosage: 500 MG, BID
     Route: 050
  7. NEORECORMON [Concomitant]
     Active Substance: ERYTHROPOIETIN
     Dosage: 10000 MG, QWK
     Route: 050
  8. ARANESP [Suspect]
     Active Substance: DARBEPOETIN ALFA
     Indication: PLASMA CELL MYELOMA
     Dosage: 300 MUG, Q3WK
     Route: 050
     Dates: start: 20170531
  9. VELCADE [Suspect]
     Active Substance: BORTEZOMIB
     Indication: PLASMA CELL MYELOMA
     Dosage: 1.3 MG/M2,  AS PER CHEMO PRESCRIPTION
     Route: 058
     Dates: start: 20170822
  10. COMBODART [Concomitant]
     Active Substance: DUTASTERIDE\TAMSULOSIN
     Dosage: 0.9 MG (0.5 MG/0.4 MG), QD
     Route: 050
  11. CLARITHROMYCIN. [Concomitant]
     Active Substance: CLARITHROMYCIN
     Dosage: 1000 MG, UNK
     Route: 050
  12. EXPUTEX [Concomitant]
     Indication: RESPIRATORY TRACT INFECTION
     Dosage: 500 MG, T.D.S.
     Route: 050
  13. DEXAMETHASONE. [Concomitant]
     Active Substance: DEXAMETHASONE
     Dosage: 20 MG, AS PER CHEMO PRESCRIPTION
     Route: 050

REACTIONS (14)
  - Lip dry [Unknown]
  - Asthenia [Unknown]
  - Dysstasia [Unknown]
  - Respiratory tract infection [Not Recovered/Not Resolved]
  - Lower respiratory tract infection [Not Recovered/Not Resolved]
  - Injection site bruising [Unknown]
  - Fatigue [Not Recovered/Not Resolved]
  - Haemoglobin decreased [Unknown]
  - Dyspnoea [Not Recovered/Not Resolved]
  - Cough [Not Recovered/Not Resolved]
  - Cyanosis [Not Recovered/Not Resolved]
  - Arthralgia [Not Recovered/Not Resolved]
  - Amyloidosis [Not Recovered/Not Resolved]
  - Neuropathy peripheral [Not Recovered/Not Resolved]

NARRATIVE: CASE EVENT DATE: 201707
